FAERS Safety Report 4508037-9 (Version None)
Quarter: 2004Q4

REPORT INFORMATION
  Report Type: 
  Country: None (occurrence: None)
  Receive Date: 20041123
  Receipt Date: 20030923
  Transmission Date: 20050328
  Serious: No
  Sender: FDA-Public Use
  Company Number: US-GLAXOSMITHKLINE-A0427403A

PATIENT
  Age: 34 Year
  Sex: Female

DRUGS (4)
  1. WELLBUTRIN [Suspect]
     Indication: DEPRESSION
     Dosage: 200MG TWICE PER DAY
     Route: 048
     Dates: start: 20030905, end: 20030922
  2. QUININE [Concomitant]
     Indication: RESTLESS LEGS SYNDROME
     Route: 048
     Dates: start: 20030920, end: 20030923
  3. TRAZODONE HCL [Concomitant]
     Indication: HYPNOTHERAPY
     Dosage: 100U THREE TIMES PER DAY
     Route: 048
  4. TOPAMAX [Concomitant]
     Dosage: 100U THREE TIMES PER DAY
     Route: 048

REACTIONS (1)
  - RASH [None]
